FAERS Safety Report 24332252 (Version 2)
Quarter: 2025Q4

REPORT INFORMATION
  Report Type: Spontaneous
  Country: EU (occurrence: EU)
  Receive Date: 20240918
  Receipt Date: 20251123
  Transmission Date: 20260118
  Serious: Yes (Hospitalization, Other)
  Sender: AUROBINDO
  Company Number: EU-EMA-20141218-mgevhumanwt-143156714

PATIENT
  Age: 1 Year
  Sex: Female

DRUGS (5)
  1. MYCOPHENOLATE MOFETIL [Suspect]
     Active Substance: MYCOPHENOLATE MOFETIL
     Indication: Immunosuppression
     Dosage: UNK
     Route: 065
  2. TACROLIMUS [Suspect]
     Active Substance: TACROLIMUS
     Indication: Immunosuppressant drug therapy
     Dosage: UNK
     Route: 065
  3. SIROLIMUS [Concomitant]
     Active Substance: SIROLIMUS
     Indication: Product used for unknown indication
     Dosage: UNK
     Route: 065
  4. PREDNISONE [Concomitant]
     Active Substance: PREDNISONE
     Indication: Immunosuppressant drug therapy
     Dosage: 1 MILLIGRAM/KILOGRAM, ONCE A DAY (INCREASED DOSE UPTO 1MG/KG/DAYWAS SLOWLY REDUCED TO 0.2MG/KG /DAY, SUSTAINED FOR 2YR + THEN DISC)
     Route: 065
  5. PREDNISONE [Concomitant]
     Active Substance: PREDNISONE
     Dosage: 0.2 MILLIGRAM/KILOGRAM (0.2 MG/KG PER DAY)
     Route: 065

REACTIONS (7)
  - Platelet count decreased [Recovering/Resolving]
  - Haemolysis [Recovering/Resolving]
  - Thrombotic microangiopathy [Recovered/Resolved]
  - Haemolytic anaemia [Recovered/Resolved]
  - Myelosuppression [Recovered/Resolved]
  - Haemochromatosis [Recovered/Resolved]
  - Toxicity to various agents [Recovering/Resolving]
